FAERS Safety Report 23633430 (Version 1)
Quarter: 2024Q1

REPORT INFORMATION
  Report Type: Spontaneous
  Country: US (occurrence: None)
  Receive Date: 20240314
  Receipt Date: 20240314
  Transmission Date: 20240409
  Serious: Yes (Death)
  Sender: FDA-Public Use
  Company Number: None

PATIENT
  Age: 65 Year
  Sex: Male

DRUGS (1)
  1. NIVESTYM [Suspect]
     Active Substance: FILGRASTIM-AAFI
     Indication: Diffuse large B-cell lymphoma
     Dosage: OTHER STRENGTH : 480MCG/0.8ML;?FREQUENCY : DAILY;?

REACTIONS (1)
  - Death [None]
